FAERS Safety Report 4503161-9 (Version None)
Quarter: 2004Q4

REPORT INFORMATION
  Report Type: 
  Country: None (occurrence: None)
  Receive Date: 20041116
  Receipt Date: 20041116
  Transmission Date: 20050328
  Serious: Yes (Life-Threatening)
  Sender: FDA-Public Use
  Company Number: None

PATIENT
  Age: 24 Year
  Sex: Female
  Weight: 79.3795 kg

DRUGS (4)
  1. MAXIPIME [Suspect]
     Indication: OSTEOMYELITIS
     Dosage: 2G Q 12 HRS IV
     Route: 042
     Dates: start: 20041026
  2. MAXIPIME [Suspect]
     Indication: OSTEOMYELITIS
     Dosage: 2G Q 12 HRS IV
     Route: 042
     Dates: start: 20041110
  3. MAXIPIME [Suspect]
  4. MAXIPIME [Suspect]

REACTIONS (1)
  - NEUTROPENIA [None]
